FAERS Safety Report 25039711 (Version 2)
Quarter: 2025Q1

REPORT INFORMATION
  Report Type: Spontaneous
  Country: US (occurrence: US)
  Receive Date: 20250305
  Receipt Date: 20250308
  Transmission Date: 20250409
  Serious: No
  Sender: ABBVIE
  Company Number: US-ABBVIE-6160515

PATIENT
  Sex: Female

DRUGS (1)
  1. OZURDEX [Suspect]
     Active Substance: DEXAMETHASONE
     Indication: Birdshot chorioretinopathy
     Route: 050
     Dates: start: 202312

REACTIONS (3)
  - Product solubility abnormal [Not Recovered/Not Resolved]
  - Off label use [Unknown]
  - Visual impairment [Unknown]
